FAERS Safety Report 17761600 (Version 1)
Quarter: 2020Q2

REPORT INFORMATION
  Report Type: Report from Study
  Country: CA (occurrence: CA)
  Receive Date: 20200508
  Receipt Date: 20200508
  Transmission Date: 20200714
  Serious: Yes (Hospitalization, Other)
  Sender: FDA-Public Use
  Company Number: NVSC2020CA118907

PATIENT
  Age: 1 Year
  Sex: Female
  Weight: 7.5 kg

DRUGS (3)
  1. PREDNISONE. [Suspect]
     Active Substance: PREDNISONE
     Dosage: 7 MG
     Route: 065
  2. SIROLIMUS. [Suspect]
     Active Substance: SIROLIMUS
     Dosage: UNK
     Route: 065
     Dates: start: 202003
  3. JAKAVI [Suspect]
     Active Substance: RUXOLITINIB
     Indication: GRAFT VERSUS HOST DISEASE
     Dosage: 1.25 MG, BID
     Route: 048
     Dates: start: 20200422, end: 202004

REACTIONS (4)
  - Pyrexia [Not Recovered/Not Resolved]
  - Tachycardia [Unknown]
  - Staphylococcal infection [Unknown]
  - White blood cell count increased [Unknown]

NARRATIVE: CASE EVENT DATE: 20200427
